FAERS Safety Report 7719087-3 (Version None)
Quarter: 2011Q3

REPORT INFORMATION
  Report Type: 
  Country: None (occurrence: None)
  Receive Date: 20110824
  Receipt Date: 20110809
  Transmission Date: 20111222
  Serious: Yes (Hospitalization)
  Sender: FDA-Public Use
  Company Number: 7076064

PATIENT
  Age: 65 Year
  Sex: Female

DRUGS (17)
  1. LEVOTHYROXINE SODIUM [Suspect]
     Indication: THYROIDECTOMY
     Dates: start: 20100101
  2. CLOPIDOGREL [Concomitant]
  3. LEVOFLOXACIN [Concomitant]
  4. FOSRENOL [Suspect]
     Indication: PRODUCT USED FOR UNKNOWN INDICATION
     Dosage: 3 GM (1 GM, IN THE MORNING, MIDDAY, IN THE EVENING)
  5. PANTOPRAZOLE [Concomitant]
  6. IXPRIM (ULTRACET) TRAMADOL, PARACETAMOL [Concomitant]
  7. PROCORALAN (IVABRADINE HYDROCHLORIDE) [Concomitant]
  8. KAYEXALATE [Suspect]
     Indication: PRODUCT USED FOR UNKNOWN INDICATION
     Dosage: 1 DF, 4 IN 1 WK)
     Dates: start: 20110801
  9. LASIX [Concomitant]
  10. CALCIUM CARBONATE [Suspect]
     Indication: PRODUCT USED FOR UNKNOWN INDICATION
     Dosage: 4 DF (2 DF, IN THE MORNING AND IN THE EVENING)
  11. ATORVASTATIN CALCIUM [Concomitant]
  12. STABLON (TIANEPTINE) [Concomitant]
  13. CORDARONE [Suspect]
     Indication: CARDIAC DISORDER
     Dates: start: 20110501
  14. FUCIDINE (FUSIDIC ACID) (FUSIDATE SODIUM) [Concomitant]
  15. CARDENSIEL  (BISOPROLOL FUMARATE) (BISOPROLOL HEMIFUMARATE) [Concomitant]
  16. LEXOMIL (BROMAZEPAM) [Concomitant]
  17. INSULIN [Concomitant]

REACTIONS (7)
  - ASTHENIA [None]
  - GENERAL PHYSICAL CONDITION ABNORMAL [None]
  - TRI-IODOTHYRONINE DECREASED [None]
  - BLOOD THYROID STIMULATING HORMONE INCREASED [None]
  - DRUG INTERACTION [None]
  - DRUG INEFFECTIVE [None]
  - THYROXINE DECREASED [None]
